FAERS Safety Report 16206815 (Version 4)
Quarter: 2019Q2

REPORT INFORMATION
  Report Type: Report from Study
  Country: None (occurrence: US)
  Receive Date: 20190417
  Receipt Date: 20190621
  Transmission Date: 20190711
  Serious: Yes (Hospitalization)
  Sender: FDA-Public Use
  Company Number: US-ABBVIE-19S-163-2746371-00

PATIENT
  Age: 80 Year
  Sex: Male
  Weight: 80.36 kg

DRUGS (1)
  1. CREON [Suspect]
     Active Substance: PANCRELIPASE AMYLASE\PANCRELIPASE LIPASE\PANCRELIPASE PROTEASE
     Indication: PRODUCT USED FOR UNKNOWN INDICATION
     Dosage: 3 WITH EACH MEAL?1 WITH EACH SNACK
     Route: 048
     Dates: start: 201504

REACTIONS (3)
  - Cystitis [Recovered/Resolved]
  - Glucose urine present [Recovered/Resolved]
  - Nephropathy [Unknown]

NARRATIVE: CASE EVENT DATE: 20190214
